FAERS Safety Report 9836183 (Version 2)
Quarter: 2014Q1

REPORT INFORMATION
  Report Type: Report from Study
  Country: US (occurrence: US)
  Receive Date: 20140123
  Receipt Date: 20140128
  Transmission Date: 20141002
  Serious: Yes (Death)
  Sender: FDA-Public Use
  Company Number: US-ROCHE-1337621

PATIENT
  Age: 81 Year
  Sex: Female
  Weight: 74.91 kg

DRUGS (21)
  1. RITUXAN [Suspect]
     Indication: RHEUMATOID ARTHRITIS
     Route: 042
     Dates: start: 20130212, end: 20130228
  2. TOCILIZUMAB [Suspect]
     Indication: PRODUCT USED FOR UNKNOWN INDICATION
     Route: 042
  3. AMIODARONE [Concomitant]
     Dosage: EVERY OTHER DAY - MON,WED,FRI
     Route: 065
  4. COUMADIN [Concomitant]
     Dosage: MONDAY, WEDNESDAY AND FRIDAY
     Route: 065
  5. COUMADIN [Concomitant]
     Dosage: ALL OTHER
     Route: 065
  6. ECOTRIN [Concomitant]
     Route: 065
  7. LASIX [Concomitant]
     Route: 065
  8. LIPITOR [Concomitant]
     Dosage: QHS
     Route: 065
  9. LYRICA [Concomitant]
     Route: 065
  10. PANTOPRAZOLE [Concomitant]
     Route: 065
  11. RESTASIS [Concomitant]
  12. SPIRONOLACTONE [Concomitant]
  13. SYNTHROID [Concomitant]
  14. ZYRTEC [Concomitant]
  15. PLAVIX [Concomitant]
  16. COMBIVENT [Concomitant]
     Route: 065
  17. LORTAB [Concomitant]
     Dosage: 7.5/500 AS NEEDED
     Route: 065
  18. TEMAZEPAM [Concomitant]
     Route: 065
  19. MIRALAX [Concomitant]
     Route: 065
  20. CITRACAL [Concomitant]
     Route: 065
  21. TYLENOL [Concomitant]
     Route: 065

REACTIONS (1)
  - Gallbladder cancer [Fatal]
